FAERS Safety Report 4344333-6 (Version None)
Quarter: 2004Q1

REPORT INFORMATION
  Report Type: 
  Country: None (occurrence: None)
  Receive Date: 20040319
  Receipt Date: 20040127
  Transmission Date: 20041129
  Serious: No
  Sender: FDA-Public Use
  Company Number: US-JNJFOC-20040105798

PATIENT
  Age: 19 Year
  Sex: Female
  Weight: 102.5129 kg

DRUGS (3)
  1. ORTHO EVRA [Suspect]
     Indication: CONTRACEPTION
     Dosage: 1 DOSE (S), 3 IN 4 WEEK, TRANSDERMAL
     Route: 062
     Dates: start: 20030801
  2. TYLENOL [Concomitant]
  3. ALBUTEROL [Concomitant]

REACTIONS (3)
  - FATIGUE [None]
  - METRORRHAGIA [None]
  - NAUSEA [None]
